FAERS Safety Report 19733713 (Version 2)
Quarter: 2021Q4

REPORT INFORMATION
  Report Type: Spontaneous
  Country: CA (occurrence: CA)
  Receive Date: 20210823
  Receipt Date: 20211101
  Transmission Date: 20220304
  Serious: Yes (Life-Threatening, Hospitalization)
  Sender: FDA-Public Use
  Company Number: CA-BEH-2021135067

PATIENT
  Age: 84 Year
  Sex: Male

DRUGS (9)
  1. ALBUREX [Suspect]
     Active Substance: ALBUMIN HUMAN
     Indication: Hepatic cirrhosis
     Dosage: 100 MILLILITER (1 VIAL), TOT - 120CC/H - TRANSFUSION 4/4 COMPLETED
     Route: 065
     Dates: start: 20210812, end: 20210812
  2. LASIX [Concomitant]
     Active Substance: FUROSEMIDE
     Dosage: 40 MILLIGRAM
     Route: 042
     Dates: end: 20210812
  3. LASIX [Concomitant]
     Active Substance: FUROSEMIDE
     Dosage: UNK
  4. CARVEDILOL [Concomitant]
     Active Substance: CARVEDILOL
     Dosage: UNK
     Dates: end: 20210812
  5. CEFTRIAXONE [Concomitant]
     Active Substance: CEFTRIAXONE
     Indication: Infection prophylaxis
  6. CEFTRIAXONE [Concomitant]
     Active Substance: CEFTRIAXONE
     Indication: Infection prophylaxis
  7. OXYGEN [Concomitant]
     Active Substance: OXYGEN
     Indication: Fluid retention
     Dosage: 2-2.5 LITRE / MIN
     Dates: start: 20210812, end: 20210812
  8. OXYGEN [Concomitant]
     Active Substance: OXYGEN
     Dosage: 3 LITRE
     Dates: start: 20210812
  9. ACETAMINOPHEN [Concomitant]
     Active Substance: ACETAMINOPHEN
     Dosage: UNK
     Dates: start: 20210812

REACTIONS (7)
  - Acute pulmonary oedema [Unknown]
  - Pyrexia [Unknown]
  - Chills [Unknown]
  - Dyspnoea [Unknown]
  - Hypertension [Unknown]
  - Tachypnoea [Unknown]
  - Rales [Unknown]

NARRATIVE: CASE EVENT DATE: 20210812
